FAERS Safety Report 7118645-7 (Version None)
Quarter: 2010Q4

REPORT INFORMATION
  Report Type: 
  Country: None (occurrence: None)
  Receive Date: 20101123
  Receipt Date: 20101109
  Transmission Date: 20110411
  Serious: Yes (Other)
  Sender: FDA-Public Use
  Company Number: PHHY2010US76646

PATIENT
  Sex: Female

DRUGS (6)
  1. FEMARA [Suspect]
     Dosage: UNK
  2. FUROSEMIDE [Suspect]
     Dosage: UNK
  3. POTASSIUM CHLORIDE [Suspect]
  4. MELATONIN [Suspect]
  5. NITROGLYCERIN ^A.L.^ [Concomitant]
  6. BLOOD THINNERS [Concomitant]
     Dosage: UNK

REACTIONS (2)
  - BONE NEOPLASM MALIGNANT [None]
  - NEOPLASM MALIGNANT [None]
